FAERS Safety Report 9596132 (Version 1)
Quarter: 2013Q4

REPORT INFORMATION
  Report Type: Spontaneous
  Country: GB (occurrence: GB)
  Receive Date: 20131004
  Receipt Date: 20131004
  Transmission Date: 20140711
  Serious: Yes (Other)
  Sender: FDA-Public Use
  Company Number: GB-ACTAVIS-2013-17393

PATIENT
  Age: 85 Year
  Sex: Female

DRUGS (3)
  1. CO-CODAMOL [Suspect]
     Indication: MUSCULOSKELETAL PAIN
     Dosage: 500 MG, UNKNOWN; 8/500
     Route: 048
     Dates: start: 20120805, end: 20120826
  2. RAMIPRIL [Concomitant]
     Indication: PRODUCT USED FOR UNKNOWN INDICATION
     Dosage: UNK
     Route: 065
  3. CALCIUM [Concomitant]
     Indication: PRODUCT USED FOR UNKNOWN INDICATION
     Dosage: UNK
     Route: 065

REACTIONS (3)
  - Withdrawal syndrome [Not Recovered/Not Resolved]
  - Visual impairment [Not Recovered/Not Resolved]
  - Constipation [Not Recovered/Not Resolved]
